FAERS Safety Report 9628898 (Version 2)
Quarter: 2013Q4

REPORT INFORMATION
  Report Type: Spontaneous
  Country: IT (occurrence: IT)
  Receive Date: 20131017
  Receipt Date: 20131025
  Transmission Date: 20140711
  Serious: Yes (Hospitalization)
  Sender: FDA-Public Use
  Company Number: PHHY2013IT113500

PATIENT
  Age: 26 Year
  Sex: Female

DRUGS (5)
  1. OLANZAPINE [Suspect]
     Indication: MEDICATION ERROR
     Dosage: 10 MG, ONCE/SINGLE
     Route: 048
     Dates: start: 20130927, end: 20130927
  2. SERTRALINE [Suspect]
  3. XANAX [Concomitant]
  4. TAVOR [Concomitant]
  5. AMISULPRIDE [Concomitant]

REACTIONS (4)
  - Incorrect dose administered [Recovering/Resolving]
  - Muscle contractions involuntary [Recovering/Resolving]
  - Tremor [Recovering/Resolving]
  - Dyskinesia [Recovering/Resolving]
